FAERS Safety Report 6119341-5 (Version None)
Quarter: 2009Q1

REPORT INFORMATION
  Report Type: 
  Country: None (occurrence: None)
  Receive Date: 20090316
  Receipt Date: 20090303
  Transmission Date: 20090719
  Serious: Yes (Hospitalization)
  Sender: FDA-Public Use
  Company Number: AU-ELI_LILLY_AND_COMPANY-AU200902004930

PATIENT
  Sex: Male

DRUGS (2)
  1. CYMBALTA [Suspect]
     Dosage: 60MG X 70 CAPSULES=4200 MG, UNKNOWN
     Route: 065
     Dates: start: 20090220
  2. RIBAVIRIN [Concomitant]
     Dosage: 200MG X 170 CAPSULES=34000 MG, UNKNOWN
     Route: 065
     Dates: start: 20090220

REACTIONS (5)
  - ALTERED STATE OF CONSCIOUSNESS [None]
  - CONFUSIONAL STATE [None]
  - INTENTIONAL OVERDOSE [None]
  - SOMNOLENCE [None]
  - SUICIDE ATTEMPT [None]
